FAERS Safety Report 9321669 (Version 1)
Quarter: 2013Q2

REPORT INFORMATION
  Report Type: Spontaneous
  Country: JP (occurrence: None)
  Receive Date: 20130529
  Receipt Date: 20130529
  Transmission Date: 20140414
  Serious: Yes (Hospitalization)
  Sender: FDA-Public Use
  Company Number: AXC-2013-000221

PATIENT
  Age: 34 Year
  Sex: Female

DRUGS (5)
  1. URSODEOXYCHOLIC ACID [Suspect]
     Indication: PRODUCT USED FOR UNKNOWN INDICATION
     Route: 048
     Dates: start: 20120613, end: 20120809
  2. UTEMERIN (RITODRINE HYDROCHLORIDE) [Concomitant]
  3. CLARITH (CLARITHROMYCIN) [Concomitant]
  4. CALONAL (PARACETAMOL) [Concomitant]
  5. AMPICILLIN (AMPICILLIN) [Concomitant]

REACTIONS (6)
  - Maternal exposure during pregnancy [None]
  - Tachycardia foetal [None]
  - Foetal heart rate deceleration [None]
  - Mycoplasma infection [None]
  - Peripartum haemorrhage [None]
  - Respiratory tract infection [None]
